FAERS Safety Report 23675833 (Version 1)
Quarter: 2024Q1

REPORT INFORMATION
  Report Type: Other
  Country: GB (occurrence: GB)
  Receive Date: 20240327
  Receipt Date: 20240327
  Transmission Date: 20240410
  Serious: Yes (Other)
  Sender: FDA-Public Use
  Company Number: None

PATIENT
  Age: 77 Year
  Sex: Female
  Weight: 53 kg

DRUGS (4)
  1. MIRABEGRON [Suspect]
     Active Substance: MIRABEGRON
     Indication: Urinary tract disorder
     Dosage: 25 MG, ONCE DAILY (URINARY SYMPTOMS)
     Route: 048
     Dates: start: 20230725
  2. LEVOTHYROXINE [Concomitant]
     Active Substance: LEVOTHYROXINE\LEVOTHYROXINE SODIUM
     Indication: Thyroid disorder
     Dosage: 1 DF, ONCE DAILY (FOR THYROID, PLEASE BOOK A BLOOD)
     Route: 065
     Dates: start: 20231031
  3. MESALAMINE [Concomitant]
     Active Substance: MESALAMINE
     Indication: Colitis
     Route: 065
     Dates: start: 20230623
  4. VAGIFEM [Concomitant]
     Active Substance: ESTRADIOL
     Indication: Product used for unknown indication
     Dosage: 1 DF (INSERT ONE AS DIRECTED), UNKNOWN FREQ.
     Route: 065
     Dates: start: 20240109

REACTIONS (3)
  - Tinnitus [Not Recovered/Not Resolved]
  - Deafness [Unknown]
  - Condition aggravated [Unknown]
